FAERS Safety Report 20039305 (Version 1)
Quarter: 2021Q4

REPORT INFORMATION
  Report Type: Spontaneous
  Country: DE (occurrence: DE)
  Receive Date: 20211105
  Receipt Date: 20211105
  Transmission Date: 20220303
  Serious: Yes (Other)
  Sender: FDA-Public Use
  Company Number: DE-BoehringerIngelheim-2021-BI-135326

PATIENT
  Age: 74 Year
  Sex: Male

DRUGS (2)
  1. GILOTRIF [Suspect]
     Active Substance: AFATINIB
     Indication: Lung adenocarcinoma
     Dates: start: 20170717, end: 201801
  2. GILOTRIF [Suspect]
     Active Substance: AFATINIB
     Dates: start: 201801

REACTIONS (14)
  - Bronchial carcinoma [Unknown]
  - Lymphangiosis carcinomatosa [Unknown]
  - Pneumothorax spontaneous [Unknown]
  - Weight increased [Recovered/Resolved]
  - Rash [Recovered/Resolved]
  - Lymphadenopathy [Recovering/Resolving]
  - Pneumonia [Unknown]
  - Diarrhoea [Recovered/Resolved]
  - Decreased appetite [Unknown]
  - Skin disorder [Unknown]
  - Rash [Unknown]
  - Lung infiltration [Recovering/Resolving]
  - Weight increased [Unknown]
  - Rash [Unknown]

NARRATIVE: CASE EVENT DATE: 20161101
